FAERS Safety Report 10403419 (Version 1)
Quarter: 2014Q3

REPORT INFORMATION
  Report Type: Spontaneous
  Country: CA (occurrence: CA)
  Receive Date: 20140822
  Receipt Date: 20140822
  Transmission Date: 20150326
  Serious: Yes (Death)
  Sender: FDA-Public Use
  Company Number: PHHY2014CA101336

PATIENT
  Age: 60 Year
  Sex: Male

DRUGS (6)
  1. NORTRIPTYLINE [Suspect]
     Active Substance: NORTRIPTYLINE
     Indication: MUSCULOSKELETAL PAIN
  2. KETAMINE [Suspect]
     Active Substance: KETAMINE
     Indication: MUSCULOSKELETAL PAIN
  3. GABAPENTIN. [Suspect]
     Active Substance: GABAPENTIN
     Indication: MUSCULOSKELETAL PAIN
  4. BACLOFEN. [Suspect]
     Active Substance: BACLOFEN
     Indication: MUSCULOSKELETAL PAIN
  5. OPIOIDS [Suspect]
     Active Substance: UNSPECIFIED INGREDIENT
     Indication: MUSCULOSKELETAL PAIN
  6. METOCLOPRAMIDE. [Suspect]
     Active Substance: METOCLOPRAMIDE
     Indication: MUSCULOSKELETAL PAIN

REACTIONS (2)
  - Treatment failure [Unknown]
  - Death [Fatal]
